FAERS Safety Report 17712807 (Version 1)
Quarter: 2020Q2

REPORT INFORMATION
  Report Type: Report from Study
  Country: NL (occurrence: NL)
  Receive Date: 20200427
  Receipt Date: 20200427
  Transmission Date: 20200714
  Serious: Yes (Death, Other)
  Sender: FDA-Public Use
  Company Number: NL-CURIUM-201000702

PATIENT
  Age: 65 Year

DRUGS (1)
  1. OCTREOSCAN [Suspect]
     Active Substance: INDIUM IN-111 CHLORIDE\INDIUM IN-111 PENTETREOTIDE
     Indication: NEUROENDOCRINE TUMOUR
     Route: 051

REACTIONS (4)
  - Product use in unapproved indication [Recovered/Resolved]
  - Product use issue [Recovered/Resolved]
  - Neoplasm progression [Fatal]
  - Myelodysplastic syndrome [Unknown]
